FAERS Safety Report 21389817 (Version 2)
Quarter: 2022Q4

REPORT INFORMATION
  Report Type: Spontaneous
  Country: IL (occurrence: IL)
  Receive Date: 20220929
  Receipt Date: 20221013
  Transmission Date: 20230113
  Serious: Yes (Other)
  Sender: FDA-Public Use
  Company Number: IL-TEVAIL-2022-IL-2075633

PATIENT
  Age: 62 Year
  Sex: Male

DRUGS (1)
  1. LENALIDOMIDE [Suspect]
     Active Substance: LENALIDOMIDE
     Indication: Plasma cell myeloma
     Route: 065
     Dates: start: 202203

REACTIONS (9)
  - Myelitis [Unknown]
  - Paraesthesia [Unknown]
  - Gait disturbance [Unknown]
  - Product substitution issue [Unknown]
  - Hypoaesthesia [Unknown]
  - Pain in extremity [Unknown]
  - Burning sensation [Unknown]
  - Condition aggravated [Unknown]
  - Paresis [Unknown]

NARRATIVE: CASE EVENT DATE: 20220101
